FAERS Safety Report 8606915-2 (Version None)
Quarter: 2012Q3

REPORT INFORMATION
  Report Type: 
  Country: None (occurrence: None)
  Receive Date: 20120820
  Receipt Date: 20120810
  Transmission Date: 20120928
  Serious: Yes (Hospitalization, Other)
  Sender: FDA-Public Use
  Company Number: US-BAXTER-2012BAX012588

PATIENT
  Sex: Female
  Weight: 118.84 kg

DRUGS (7)
  1. SODIUM CHLORIDE 3% [Suspect]
     Indication: HYDROCEPHALUS
     Route: 042
     Dates: start: 20120718, end: 20120718
  2. SODIUM CHLORIDE 3% [Suspect]
     Route: 042
     Dates: start: 20120719, end: 20120719
  3. SODIUM CHLORIDE 3% [Suspect]
     Route: 042
     Dates: start: 20120722, end: 20120722
  4. SODIUM CHLORIDE 3% [Suspect]
     Route: 042
     Dates: start: 20120720, end: 20120720
  5. SODIUM CHLORIDE 3% [Suspect]
     Route: 042
     Dates: start: 20120716, end: 20120717
  6. SODIUM CHLORIDE 3% [Suspect]
     Route: 042
     Dates: start: 20120721, end: 20120721
  7. SODIUM CHLORIDE 3% [Suspect]
     Route: 042
     Dates: start: 20120723

REACTIONS (1)
  - DRUG INEFFECTIVE [None]
